FAERS Safety Report 4898775-0 (Version None)
Quarter: 2006Q1

REPORT INFORMATION
  Report Type: 
  Country: None (occurrence: None)
  Receive Date: 20060202
  Receipt Date: 20060126
  Transmission Date: 20060701
  Serious: Yes (Hospitalization)
  Sender: FDA-Public Use
  Company Number: FR-ABBOTT-06P-056-0323537-00

PATIENT
  Age: 25 Year
  Sex: Female

DRUGS (4)
  1. VALPROATE CHRONO [Suspect]
     Indication: OVERDOSE
     Route: 048
     Dates: start: 19990713, end: 19990713
  2. VALPROATE CHRONO [Suspect]
     Indication: EPILEPSY
  3. OXAZEPAM [Concomitant]
     Indication: DRUG USE FOR UNKNOWN INDICATION
  4. ETHANOL [Concomitant]
     Indication: DRUG USE FOR UNKNOWN INDICATION

REACTIONS (4)
  - INTENTIONAL DRUG MISUSE [None]
  - OVERDOSE [None]
  - SOMNOLENCE [None]
  - VOMITING [None]
